FAERS Safety Report 8796924 (Version 2)
Quarter: 2012Q4

REPORT INFORMATION
  Report Type: 
  Country: DE (occurrence: DE)
  Receive Date: 20120920
  Receipt Date: 20121011
  Transmission Date: 20130627
  Serious: Yes (Other)
  Sender: FDA-Public Use
  Company Number: PHHY2012DE081249

PATIENT
  Age: 79 Year
  Sex: Female

DRUGS (1)
  1. ZOMETA [Suspect]
     Indication: BREAST CANCER
     Dosage: unspecified dose every 4 weeks
     Route: 042
     Dates: start: 200912

REACTIONS (3)
  - Tooth abscess [Unknown]
  - Dental caries [Unknown]
  - Tooth fracture [Unknown]
